FAERS Safety Report 14446404 (Version 7)
Quarter: 2021Q1

REPORT INFORMATION
  Report Type: Spontaneous
  Country: JP (occurrence: JP)
  Receive Date: 20180126
  Receipt Date: 20210327
  Transmission Date: 20210419
  Serious: Yes (Hospitalization, Other)
  Sender: FDA-Public Use
  Company Number: JP-UNITED THERAPEUTICS-UNT-2018-001094

PATIENT
  Age: 52 Year
  Sex: Female
  Weight: 48.9 kg

DRUGS (25)
  1. REMODULIN [Suspect]
     Active Substance: TREPROSTINIL
     Dosage: 0.0833 ?G/KG, CONTINUING
     Route: 041
     Dates: start: 20180924
  2. ULTIBRO BREEZHALER [Concomitant]
     Active Substance: GLYCOPYRRONIUM\INDACATEROL
     Indication: CHRONIC OBSTRUCTIVE PULMONARY DISEASE
     Dosage: UNK
     Dates: start: 20161126
  3. MOHRUS [Concomitant]
     Active Substance: KETOPROFEN
     Indication: RHEUMATOID ARTHRITIS
     Dosage: UNK
     Route: 061
  4. AUGMENTIN [Concomitant]
     Active Substance: AMOXICILLIN\CLAVULANATE POTASSIUM
     Dosage: UNK
     Route: 048
     Dates: start: 20200313, end: 20200323
  5. VOLIBRIS [Concomitant]
     Active Substance: AMBRISENTAN
     Indication: PULMONARY ARTERIAL HYPERTENSION
     Dosage: UNK
     Route: 048
     Dates: start: 201112
  6. REVATIO [Concomitant]
     Active Substance: SILDENAFIL CITRATE
     Indication: PULMONARY ARTERIAL HYPERTENSION
     Dosage: UNK
     Route: 048
     Dates: start: 200808
  7. REVATIO [Concomitant]
     Active Substance: SILDENAFIL CITRATE
     Indication: COLLAGEN DISORDER
  8. ASPARA POTASSIUM [Concomitant]
     Active Substance: POTASSIUM ASPARTATE
     Indication: HYPOKALAEMIA
     Dosage: UNK
     Route: 048
  9. FERRUM [Concomitant]
     Active Substance: FERROUS FUMARATE
     Indication: IRON DEFICIENCY ANAEMIA
     Dosage: UNK
     Route: 048
  10. REMODULIN [Suspect]
     Active Substance: TREPROSTINIL
     Indication: COLLAGEN DISORDER
     Dosage: 0.0882 ?G/KG, CONTINUING
     Route: 041
  11. LOPEMIN FOR CHILDREN [Concomitant]
     Indication: DIARRHOEA
     Dosage: UNK
     Route: 048
  12. AMOXICILLIN HYDRATE [Concomitant]
     Active Substance: AMOXICILLIN
     Indication: PRODUCT USED FOR UNKNOWN INDICATION
     Dosage: UNK
     Route: 048
     Dates: start: 20200207, end: 20200214
  13. VOLIBRIS [Concomitant]
     Active Substance: AMBRISENTAN
     Indication: COLLAGEN DISORDER
  14. REMODULIN [Suspect]
     Active Substance: TREPROSTINIL
     Dosage: 0.079 ?G/KG, CONTINUING
     Route: 041
     Dates: start: 20161007
  15. ENTERONON?R [Concomitant]
     Active Substance: PROBIOTICS NOS
     Indication: DIARRHOEA
     Dosage: UNK
     Route: 048
  16. SELARA [Concomitant]
     Active Substance: EPLERENONE
     Indication: PRODUCT USED FOR UNKNOWN INDICATION
     Dosage: UNK
     Route: 048
     Dates: start: 20171110
  17. REMODULIN [Suspect]
     Active Substance: TREPROSTINIL
     Dosage: 0.097 ?G/KG, CONTINUING
     Route: 041
  18. ULTIBRO BREEZHALER [Concomitant]
     Active Substance: GLYCOPYRRONIUM\INDACATEROL
     Dosage: UNK
     Dates: start: 20161129
  19. LUPRAC [Concomitant]
     Active Substance: TORSEMIDE
     Indication: PULMONARY ARTERIAL HYPERTENSION
     Dosage: UNK
     Route: 048
  20. AUGMENTIN [Concomitant]
     Active Substance: AMOXICILLIN\CLAVULANATE POTASSIUM
     Indication: PRODUCT USED FOR UNKNOWN INDICATION
     Dosage: UNK
     Route: 048
     Dates: start: 20200207, end: 20200214
  21. REMODULIN [Suspect]
     Active Substance: TREPROSTINIL
     Indication: PULMONARY ARTERIAL HYPERTENSION
     Dosage: 0.054 ?G/KG, CONTINUING
     Route: 041
     Dates: start: 20150925
  22. ZITHROMAC [Suspect]
     Active Substance: AZITHROMYCIN DIHYDRATE
     Indication: PRODUCT USED FOR UNKNOWN INDICATION
     Route: 048
  23. MIYA?BM [Concomitant]
     Active Substance: CLOSTRIDIUM BUTYRICUM SPORES STRAIN M-55
     Indication: PRODUCT USED FOR UNKNOWN INDICATION
     Dosage: UNK
     Route: 048
     Dates: start: 20180209
  24. AMOXICILLIN HYDRATE [Concomitant]
     Active Substance: AMOXICILLIN
     Dosage: UNK
     Route: 048
     Dates: start: 20200313, end: 20200323
  25. LUPRAC [Concomitant]
     Active Substance: TORSEMIDE
     Indication: SYSTEMIC LUPUS ERYTHEMATOSUS

REACTIONS (4)
  - Vascular device infection [Recovered/Resolved]
  - Pneumonia [Recovering/Resolving]
  - Atelectasis [Recovering/Resolving]
  - Staphylococcal infection [Recovered/Resolved]

NARRATIVE: CASE EVENT DATE: 20171208
